FAERS Safety Report 12862770 (Version 1)
Quarter: 2016Q4

REPORT INFORMATION
  Report Type: Spontaneous
  Country: US (occurrence: US)
  Receive Date: 20161019
  Receipt Date: 20161019
  Transmission Date: 20170207
  Serious: No
  Sender: FDA-Public Use
  Company Number: US-ASTELLAS-2016US032200

PATIENT
  Age: 46 Year
  Sex: Female

DRUGS (1)
  1. MYCAMINE [Suspect]
     Active Substance: MICAFUNGIN SODIUM
     Indication: BACTERAEMIA
     Route: 042
     Dates: start: 20160414, end: 20160719

REACTIONS (1)
  - Off label use [Recovered/Resolved]

NARRATIVE: CASE EVENT DATE: 20160414
